FAERS Safety Report 4590455-4 (Version None)
Quarter: 2005Q1

REPORT INFORMATION
  Report Type: 
  Country: None (occurrence: None)
  Receive Date: 20050224
  Receipt Date: 20030806
  Transmission Date: 20050727
  Serious: Yes (Life-Threatening, Other)
  Sender: FDA-Public Use
  Company Number: JP-BRISTOL-MYERS SQUIBB COMPANY-12347316

PATIENT
  Age: 57 Year
  Sex: Female

DRUGS (3)
  1. MITOMYCIN-C [Suspect]
     Indication: OVARIAN CANCER
     Route: 033
     Dates: start: 20030508, end: 20030508
  2. PARAPLATIN [Suspect]
     Indication: OVARIAN CANCER
     Route: 033
     Dates: start: 20030508, end: 20030508
  3. AMLODIPINE BESYLATE [Concomitant]
     Route: 048

REACTIONS (1)
  - ANAPHYLACTIC SHOCK [None]
